FAERS Safety Report 4719701-0 (Version None)
Quarter: 2005Q3

REPORT INFORMATION
  Report Type: 
  Country: None (occurrence: None)
  Receive Date: 20050721
  Receipt Date: 20040622
  Transmission Date: 20060218
  Serious: No
  Sender: FDA-Public Use
  Company Number: US-GLAXOSMITHKLINE-A0515582A

PATIENT
  Sex: Female

DRUGS (2)
  1. AVANDIA [Suspect]
     Route: 048
  2. METFORMIN [Concomitant]

REACTIONS (2)
  - BLOOD POTASSIUM DECREASED [None]
  - PAIN IN EXTREMITY [None]
